FAERS Safety Report 9975685 (Version 2)
Quarter: 2014Q2

REPORT INFORMATION
  Report Type: Spontaneous
  Country: IE (occurrence: IE)
  Receive Date: 20140306
  Receipt Date: 20140506
  Transmission Date: 20141212
  Serious: Yes (Hospitalization, Other)
  Sender: FDA-Public Use
  Company Number: PHFR2014IE001971

PATIENT
  Sex: Female
  Weight: 55.4 kg

DRUGS (3)
  1. CLOZARIL [Suspect]
     Indication: SCHIZOPHRENIA
     Dosage: 12.5 MG, BID
     Route: 048
     Dates: start: 20100122
  2. LUSTRAL [Concomitant]
     Dosage: 25 MG, UNK
  3. RIVOTRIL [Concomitant]
     Dosage: 0.25 MG, DAILY

REACTIONS (3)
  - Cerebrovascular accident [Recovered/Resolved]
  - Parkinson^s disease [Unknown]
  - Orthostatic hypertension [Unknown]
